FAERS Safety Report 25908584 (Version 1)
Quarter: 2025Q4

REPORT INFORMATION
  Report Type: Spontaneous
  Country: ID (occurrence: ID)
  Receive Date: 20251010
  Receipt Date: 20251010
  Transmission Date: 20260117
  Serious: Yes (Hospitalization)
  Sender: PFIZER
  Company Number: ID-PFIZER INC-PV202500117957

PATIENT
  Age: 29 Year
  Sex: Male

DRUGS (3)
  1. METHYLPREDNISOLONE [Suspect]
     Active Substance: METHYLPREDNISOLONE
     Indication: Bell^s palsy
     Dosage: 16 MG, 4X/DAY, FOR 12 DAYS, AND THEN THE DOSE WAS GRADUALLY REDUCED
     Route: 048
     Dates: start: 20240918
  2. METHYLCOBALAMIN [Concomitant]
     Active Substance: METHYLCOBALAMIN
     Dosage: 500 MCG, 3X/DAY
     Dates: start: 20240918
  3. RANITIDINE [Concomitant]
     Active Substance: RANITIDINE
     Dosage: 2 X 1 TABLET
     Dates: start: 20240918

REACTIONS (2)
  - Acne fulminans [Unknown]
  - Off label use [Unknown]

NARRATIVE: CASE EVENT DATE: 20241005
